FAERS Safety Report 5248564-2 (Version None)
Quarter: 2007Q1

REPORT INFORMATION
  Report Type: 
  Country: None (occurrence: None)
  Receive Date: 20070227
  Receipt Date: 20070215
  Transmission Date: 20070707
  Serious: Yes (Other)
  Sender: FDA-Public Use
  Company Number: PFIZER INC-2007013445

PATIENT
  Age: 67 Year
  Sex: Male

DRUGS (11)
  1. ATORVASTATIN [Interacting]
     Dosage: DAILY DOSE:80MG
  2. HYDROCHLOROTHIAZIDE [Suspect]
     Indication: HYPERTENSION
     Dosage: DAILY DOSE:12.5MG
  3. EZETIMIBE [Interacting]
     Indication: DYSLIPIDAEMIA
     Dosage: DAILY DOSE:10MG
  4. ATENOLOL [Concomitant]
     Dosage: DAILY DOSE:50MG
  5. LISINOPRIL [Concomitant]
  6. ROSIGLITAZONE [Concomitant]
  7. POTASSIUM CHLORIDE [Concomitant]
     Dosage: DAILY DOSE:20MEQ
  8. PRIMIDONE [Concomitant]
  9. CYANOCOBALAMIN [Concomitant]
     Dosage: DAILY DOSE:1000MCG
  10. NPH INSULIN [Concomitant]
  11. REGULAR INSULIN [Concomitant]

REACTIONS (5)
  - BLOOD CREATINE PHOSPHOKINASE INCREASED [None]
  - BLOOD POTASSIUM INCREASED [None]
  - DRUG INTERACTION [None]
  - MUSCLE SPASMS [None]
  - PAIN IN EXTREMITY [None]
